FAERS Safety Report 7583353-5 (Version None)
Quarter: 2011Q2

REPORT INFORMATION
  Report Type: 
  Country: None (occurrence: None)
  Receive Date: 20110623
  Receipt Date: 20110620
  Transmission Date: 20111010
  Serious: Yes (Other)
  Sender: FDA-Public Use
  Company Number: 2011SP027217

PATIENT
  Age: 20 Year
  Sex: Female
  Weight: 98.8842 kg

DRUGS (1)
  1. IMPLANON [Suspect]
     Indication: CONTRACEPTION
     Dosage: ; SBDE
     Route: 059
     Dates: start: 20080701, end: 20110613

REACTIONS (6)
  - DEVICE DISLOCATION [None]
  - REFUSAL OF TREATMENT BY PATIENT [None]
  - IMPLANT SITE PAIN [None]
  - PAIN IN EXTREMITY [None]
  - DIABETES MELLITUS [None]
  - MENOMETRORRHAGIA [None]
